FAERS Safety Report 17436127 (Version 4)
Quarter: 2020Q4

REPORT INFORMATION
  Report Type: Report from Study
  Country: JP (occurrence: JP)
  Receive Date: 20200219
  Receipt Date: 20201207
  Transmission Date: 20210113
  Serious: Yes (Hospitalization, Other)
  Sender: FDA-Public Use
  Company Number: JP-OTSUKA-2020_004777

PATIENT
  Age: 54 Year
  Sex: Female
  Weight: 58 kg

DRUGS (17)
  1. TEARBALANCE [Concomitant]
     Active Substance: HYALURONATE SODIUM
     Indication: DRY EYE
     Dosage: ADEQUATE DOSE (ML), PRN
     Route: 047
  2. AZUNOL [Concomitant]
     Indication: PROPHYLAXIS
  3. GLYCERIN. [Concomitant]
     Active Substance: GLYCERIN
     Indication: OROPHARYNGEAL PAIN
  4. MAGNESIUM OXIDE. [Concomitant]
     Active Substance: MAGNESIUM OXIDE
     Indication: CONSTIPATION PROPHYLAXIS
  5. REBAMIPIDE [Concomitant]
     Active Substance: REBAMIPIDE
     Indication: GASTRITIS PROPHYLAXIS
     Dosage: 100 MG, TID
     Route: 048
     Dates: start: 20190809
  6. NEXIUM [Concomitant]
     Active Substance: ESOMEPRAZOLE MAGNESIUM
     Indication: GASTRITIS PROPHYLAXIS
     Dosage: 20 MG, QD
     Route: 048
     Dates: start: 20190801
  7. GLYCERIN. [Concomitant]
     Active Substance: GLYCERIN
     Indication: STOMATITIS
     Dosage: ADEQUATE DOSE (ML), DAILY DOSE
     Route: 050
     Dates: start: 20200121
  8. VALACICLOVIR [Concomitant]
     Active Substance: VALACYCLOVIR HYDROCHLORIDE
     Indication: INFECTION PROPHYLAXIS
     Dosage: 500 MG, BID
     Route: 048
     Dates: start: 20200123, end: 20200210
  9. LEVOFLOXACIN. [Concomitant]
     Active Substance: LEVOFLOXACIN
     Indication: PYREXIA
     Dosage: 500 MG, QD
     Route: 048
     Dates: start: 20200203, end: 20200207
  10. URSODEOXYCHOLIC ACID [Concomitant]
     Active Substance: URSODIOL
     Indication: HEPATIC FUNCTION ABNORMAL
     Dosage: 50 MG, TID
     Route: 048
     Dates: start: 20200116, end: 20200210
  11. HALIZON [Concomitant]
     Active Substance: AMPHOTERICIN B
     Indication: ORAL CANDIDIASIS
     Dosage: 100 MG, TID
     Route: 048
     Dates: start: 20200116, end: 20200210
  12. AZUNOL [Concomitant]
     Indication: STOMATITIS
     Dosage: ADEQUATE DOSE (ML), DAILY DOSE
     Route: 050
     Dates: start: 20200106
  13. AZUNOL [Concomitant]
     Indication: OROPHARYNGEAL PAIN
  14. BUSULFAN. [Suspect]
     Active Substance: BUSULFAN
     Indication: STEM CELL TRANSPLANT
     Dosage: 0.8 MG/KG, QID
     Route: 042
     Dates: start: 20200109, end: 20200113
  15. MAGNESIUM OXIDE. [Concomitant]
     Active Substance: MAGNESIUM OXIDE
     Indication: CONSTIPATION
     Dosage: 500 MG, TID
     Route: 048
     Dates: start: 20200111
  16. PROPETO [Concomitant]
     Active Substance: PETROLATUM
     Indication: PROPHYLAXIS
     Dosage: ADEQUATE DOSE (G), DAILY DOSE
     Route: 061
     Dates: start: 20200121
  17. ACELIO [Concomitant]
     Active Substance: ACETAMINOPHEN
     Indication: PYREXIA
     Dosage: 500 MG AT ONE TIME, PRN
     Route: 042
     Dates: start: 20200203, end: 20200205

REACTIONS (17)
  - Hepatic function abnormal [Recovering/Resolving]
  - Malaise [Recovered/Resolved]
  - Diarrhoea [Recovered/Resolved]
  - Pyrexia [Recovered/Resolved]
  - Nausea [Recovered/Resolved]
  - Oropharyngeal pain [Recovered/Resolved]
  - Candida infection [Recovered/Resolved]
  - Abdominal discomfort [Recovered/Resolved]
  - Hepatic function abnormal [Recovered/Resolved]
  - Dermatitis contact [Recovered/Resolved]
  - Dysgeusia [Not Recovered/Not Resolved]
  - Decreased appetite [Recovered/Resolved]
  - Headache [Recovered/Resolved]
  - Pharyngitis [Recovered/Resolved]
  - Stomatitis [Recovered/Resolved]
  - Febrile neutropenia [Recovered/Resolved]
  - Constipation [Recovered/Resolved]

NARRATIVE: CASE EVENT DATE: 20200111
